FAERS Safety Report 5789056-1 (Version None)
Quarter: 2008Q2

REPORT INFORMATION
  Report Type: 
  Country: None (occurrence: None)
  Receive Date: 20080626
  Receipt Date: 20080619
  Transmission Date: 20081010
  Serious: Yes (Hospitalization)
  Sender: FDA-Public Use
  Company Number: B0526184A

PATIENT
  Age: 59 Year
  Sex: Female

DRUGS (4)
  1. RANITIDINE HCL [Suspect]
     Indication: PREMEDICATION
     Route: 042
     Dates: start: 20080414, end: 20080414
  2. TAXOL [Suspect]
     Indication: OVARIAN CANCER
     Dosage: 330MG PER DAY
     Dates: start: 20080414, end: 20080414
  3. CARBOPLATIN [Suspect]
     Indication: OVARIAN CANCER
     Dosage: 550MG PER DAY
     Route: 042
     Dates: start: 20080414, end: 20080414
  4. ZOPHREN [Concomitant]

REACTIONS (5)
  - BLOOD PRESSURE DECREASED [None]
  - LOSS OF CONSCIOUSNESS [None]
  - MALAISE [None]
  - NAUSEA [None]
  - VOMITING [None]
